FAERS Safety Report 9953457 (Version 1)
Quarter: 2014Q1

REPORT INFORMATION
  Report Type: Spontaneous
  Country: PR (occurrence: PR)
  Receive Date: 20140304
  Receipt Date: 20140304
  Transmission Date: 20141002
  Serious: No
  Sender: FDA-Public Use
  Company Number: PR-ABBVIE-13P-131-1081892-00

PATIENT
  Age: 65 Year
  Sex: Female

DRUGS (9)
  1. HUMIRA [Suspect]
     Indication: RHEUMATOID ARTHRITIS
     Route: 058
     Dates: start: 20120614, end: 20130328
  2. HUMIRA [Suspect]
     Dates: start: 20130418
  3. SYNTHROID [Concomitant]
     Indication: HYPOTHYROIDISM
     Route: 048
     Dates: start: 1975
  4. FOLIC ACID [Concomitant]
     Indication: THALASSAEMIA BETA
     Route: 048
  5. PRILOSEC [Concomitant]
     Indication: GASTRITIS
     Dosage: 1 TABLET DAILY AS NEEDED
     Route: 048
  6. PROTONIX [Concomitant]
     Indication: GASTRITIS
     Dosage: 1 TABLET DAILY AS NEEDED
     Route: 048
  7. HYDROTHIAZIDE [Concomitant]
     Indication: HYPERTENSION
     Route: 048
  8. ATACAND [Concomitant]
     Indication: HYPERTENSION
     Route: 048
  9. METHOTREXATE [Concomitant]
     Indication: RHEUMATOID ARTHRITIS
     Dosage: 6 TABLETS
     Route: 048

REACTIONS (1)
  - Vaginal infection [Recovered/Resolved]
